FAERS Safety Report 8167387-8 (Version None)
Quarter: 2012Q1

REPORT INFORMATION
  Report Type: 
  Country: None (occurrence: None)
  Receive Date: 20120227
  Receipt Date: 20120216
  Transmission Date: 20120608
  Serious: Yes (Other)
  Sender: FDA-Public Use
  Company Number: US-ABBOTT-12P-163-0905416-00

PATIENT
  Sex: Female
  Weight: 80.812 kg

DRUGS (9)
  1. ATENOLOL [Concomitant]
     Indication: HYPERTENSION
  2. PROTONIX [Concomitant]
     Indication: PROPHYLAXIS
  3. TRIAMTERENE AND HYDROCHLOROTHIAZIDE [Concomitant]
     Indication: HYPERTENSION
  4. PROTONIX [Concomitant]
     Indication: GASTRIC DISORDER
  5. METHOTREXATE [Concomitant]
     Indication: RHEUMATOID ARTHRITIS
  6. MOBIC [Concomitant]
     Indication: RHEUMATOID ARTHRITIS
  7. MULTI-VITAMINS [Concomitant]
     Indication: VITAMIN SUPPLEMENTATION
  8. HUMIRA [Suspect]
     Indication: RHEUMATOID ARTHRITIS
     Dates: start: 20020101
  9. FOLIC ACID [Concomitant]
     Indication: VITAMIN SUPPLEMENTATION

REACTIONS (8)
  - MUSCLE SPASMS [None]
  - VITAMIN D DECREASED [None]
  - OSTEOARTHRITIS [None]
  - GLAUCOMA [None]
  - NERVE COMPRESSION [None]
  - INJECTION SITE PAIN [None]
  - GINGIVAL DISORDER [None]
  - NEURALGIA [None]
